APPROVED DRUG PRODUCT: MIDODRINE HYDROCHLORIDE
Active Ingredient: MIDODRINE HYDROCHLORIDE
Strength: 5MG
Dosage Form/Route: TABLET;ORAL
Application: A076514 | Product #002
Applicant: CHARTWELL RX SCIENCES LLC
Approved: Sep 11, 2003 | RLD: No | RS: No | Type: DISCN